FAERS Safety Report 4304177-8 (Version None)
Quarter: 2004Q1

REPORT INFORMATION
  Report Type: 
  Country: None (occurrence: None)
  Receive Date: 20040225
  Receipt Date: 20040213
  Transmission Date: 20041129
  Serious: Yes (Death)
  Sender: FDA-Public Use
  Company Number: GB-JNJFOC-20040203183

PATIENT
  Age: 33 Year
  Sex: Male

DRUGS (1)
  1. TOPIRAMATE [Suspect]
     Indication: EPILEPSY
     Dates: start: 20020314

REACTIONS (3)
  - DIABETES MELLITUS [None]
  - GLIOBLASTOMA [None]
  - METASTATIC NEOPLASM [None]
